FAERS Safety Report 18761189 (Version 1)
Quarter: 2021Q1

REPORT INFORMATION
  Report Type: Spontaneous
  Country: IT (occurrence: IT)
  Receive Date: 20210120
  Receipt Date: 20210120
  Transmission Date: 20210419
  Serious: Yes (Hospitalization, Other)
  Sender: FDA-Public Use
  Company Number: IT-SCIEGEN-2021SCILIT00022

PATIENT
  Age: 58 Year
  Sex: Male

DRUGS (6)
  1. DOLUTEGRAVIR [Interacting]
     Active Substance: DOLUTEGRAVIR
     Indication: INFECTION
     Route: 065
  2. ACETYLSALICYLIC ACID [Suspect]
     Active Substance: ASPIRIN
     Indication: ACUTE MYOCARDIAL INFARCTION
     Route: 065
  3. SIMOCTOCOG ALFA [Concomitant]
     Indication: INFECTION
     Route: 065
  4. CLOPIDOGREL [Suspect]
     Active Substance: CLOPIDOGREL BISULFATE
     Indication: ACUTE MYOCARDIAL INFARCTION
     Route: 065
  5. DARUNAVIR [Interacting]
     Active Substance: DARUNAVIR
  6. DARUNAVIR [Interacting]
     Active Substance: DARUNAVIR
     Indication: INFECTION
     Route: 065

REACTIONS (1)
  - Haemarthrosis [Recovered/Resolved]
